FAERS Safety Report 8131967-6 (Version None)
Quarter: 2012Q1

REPORT INFORMATION
  Report Type: 
  Country: None (occurrence: None)
  Receive Date: 20120207
  Receipt Date: 20120123
  Transmission Date: 20120608
  Serious: Yes (Hospitalization)
  Sender: FDA-Public Use
  Company Number: UTC-013553

PATIENT
  Age: 64 Year
  Sex: Female
  Weight: 116.8 kg

DRUGS (3)
  1. DIURETICS (DIURETICS) [Concomitant]
  2. REMODULIN [Suspect]
     Indication: COR PULMONALE CHRONIC
     Dosage: 57.6 UG/KG (0.04 UG/KG, 1 IN 1 MIN), SUBCUTANEOUS
     Route: 058
     Dates: start: 20110406
  3. TRACLEER [Concomitant]

REACTIONS (3)
  - CARDIAC FAILURE [None]
  - CARDIAC ARREST [None]
  - VENTRICULAR FIBRILLATION [None]
